FAERS Safety Report 9861886 (Version 2)
Quarter: 2014Q1

REPORT INFORMATION
  Report Type: Report from Study
  Country: CA (occurrence: CA)
  Receive Date: 20140203
  Receipt Date: 20140203
  Transmission Date: 20141002
  Serious: Yes (Hospitalization, Other)
  Sender: FDA-Public Use
  Company Number: CA-BRISTOL-MYERS SQUIBB COMPANY-17079997

PATIENT
  Age: 68 Year
  Sex: Female
  Weight: 45 kg

DRUGS (8)
  1. ORENCIA [Suspect]
     Indication: RHEUMATOID ARTHRITIS
     Dosage: INF:45,LAST INF ON 25OCT12?EXP DATE: SEP2015?EXP DATE: JUL2016
     Route: 042
     Dates: start: 20090406
  2. LIPITOR [Concomitant]
  3. PREVACID [Concomitant]
  4. ACTONEL [Concomitant]
  5. NAPROXEN [Concomitant]
  6. METHOTREXATE [Concomitant]
  7. ROCALTROL [Concomitant]
  8. COVERSYL [Concomitant]

REACTIONS (7)
  - Dislocation of vertebra [Recovering/Resolving]
  - Vomiting [Recovered/Resolved]
  - Diarrhoea [Recovered/Resolved]
  - Paraesthesia [Not Recovered/Not Resolved]
  - Neck pain [Not Recovered/Not Resolved]
  - Sensation of heaviness [Unknown]
  - Back pain [Unknown]
